FAERS Safety Report 8880338 (Version 8)
Quarter: 2015Q1

REPORT INFORMATION
  Report Type: Report from Study
  Country: RU (occurrence: RU)
  Receive Date: 20121101
  Receipt Date: 20150308
  Transmission Date: 20150721
  Serious: Yes (Hospitalization)
  Sender: FDA-Public Use
  Company Number: PHHO2012RU015575

PATIENT
  Age: 7 Year
  Sex: Female
  Weight: 23.5 kg

DRUGS (6)
  1. METOJECT [Suspect]
     Active Substance: METHOTREXATE SODIUM
     Indication: JUVENILE IDIOPATHIC ARTHRITIS
     Dosage: 10 MG, WEEKLY
     Route: 030
     Dates: end: 20130118
  2. ACZ885 [Suspect]
     Active Substance: CANAKINUMAB
     Dosage: 2 MG/KG, QMO
     Route: 058
     Dates: start: 20140304, end: 20141015
  3. LENDACIN [Suspect]
     Active Substance: CEFTRIAXONE SODIUM
     Indication: BRONCHOPNEUMONIA
     Dosage: 8.5 G, DAILY
     Route: 065
     Dates: start: 20121025
  4. FOLIC ACID. [Concomitant]
     Active Substance: FOLIC ACID
     Indication: JUVENILE IDIOPATHIC ARTHRITIS
     Dosage: 1 MG, QD
     Route: 048
  5. BISOPROLOL [Suspect]
     Active Substance: BISOPROLOL
     Indication: PRODUCT USED FOR UNKNOWN INDICATION
     Dosage: UNK
     Route: 065
  6. ACZ885 [Suspect]
     Active Substance: CANAKINUMAB
     Indication: JUVENILE IDIOPATHIC ARTHRITIS
     Dosage: 4 MG/KG, QMO
     Route: 058
     Dates: start: 20121017

REACTIONS (7)
  - Bronchopneumonia [Recovered/Resolved]
  - Juvenile idiopathic arthritis [Recovered/Resolved]
  - Aspartate aminotransferase increased [Recovered/Resolved]
  - Dermatitis allergic [Recovered/Resolved with Sequelae]
  - Hepatitis toxic [Recovered/Resolved]
  - Pneumonia [Recovering/Resolving]
  - Alanine aminotransferase increased [Recovered/Resolved]

NARRATIVE: CASE EVENT DATE: 20121022
